FAERS Safety Report 23333559 (Version 1)
Quarter: 2023Q4

REPORT INFORMATION
  Report Type: Report from Study
  Country: CA (occurrence: CA)
  Receive Date: 20231222
  Receipt Date: 20231222
  Transmission Date: 20240109
  Serious: Yes (Other)
  Sender: FDA-Public Use
  Company Number: CA-ABBVIE-5549815

PATIENT
  Age: 54 Year
  Sex: Female

DRUGS (1)
  1. HUMIRA [Suspect]
     Active Substance: ADALIMUMAB
     Indication: Crohn^s disease
     Route: 058
     Dates: start: 20221027

REACTIONS (16)
  - Small intestinal resection [Unknown]
  - Pouchitis [Unknown]
  - Proctocolectomy [Unknown]
  - Pelvic pouch procedure [Unknown]
  - Ileostomy [Unknown]
  - Small intestinal anastomosis [Unknown]
  - Diarrhoea [Unknown]
  - Frequent bowel movements [Unknown]
  - Obstruction [Unknown]
  - Abdominal discomfort [Not Recovered/Not Resolved]
  - Enterocutaneous fistula [Not Recovered/Not Resolved]
  - Faecal calprotectin abnormal [Unknown]
  - Ileostomy closure [Unknown]
  - Wound [Unknown]
  - Small intestinal stenosis [Unknown]
  - Intestinal dilatation [Unknown]

NARRATIVE: CASE EVENT DATE: 20221201
